FAERS Safety Report 7744732-6 (Version None)
Quarter: 2011Q3

REPORT INFORMATION
  Report Type: 
  Country: None (occurrence: None)
  Receive Date: 20110912
  Receipt Date: 20110908
  Transmission Date: 20111222
  Serious: No
  Sender: FDA-Public Use
  Company Number: US-BAYER-2011-083875

PATIENT
  Age: 34 Year
  Sex: Female

DRUGS (4)
  1. NOVOLOG [Concomitant]
  2. LANTUS [Concomitant]
  3. GLUCOPHAGE [Concomitant]
  4. ULTRAVIST 150 [Suspect]
     Indication: COMPUTERISED TOMOGRAM ABDOMEN
     Dosage: 120 ML, ONCE
     Route: 042
     Dates: start: 20110908, end: 20110908

REACTIONS (4)
  - VOMITING [None]
  - URTICARIA [None]
  - NAUSEA [None]
  - PRURITUS [None]
